FAERS Safety Report 8492262 (Version 2)
Quarter: 2012Q4

REPORT INFORMATION
  Report Type: 
  Country: US (occurrence: US)
  Receive Date: 20120403
  Receipt Date: 20121121
  Transmission Date: 20130627
  Serious: Yes (Hospitalization)
  Sender: FDA-Public Use
  Company Number: US-GLAXOSMITHKLINE-A0753980A

PATIENT
  Age: 53 Year
  Sex: Female
  Weight: 122.7 kg

DRUGS (3)
  1. AVANDIA [Suspect]
     Indication: DIABETES MELLITUS
     Dosage: 4MG Twice per day
     Route: 048
     Dates: start: 2003, end: 2007
  2. AVANDAMET [Suspect]
     Indication: DIABETES MELLITUS
     Dosage: 1TAB Twice per day
     Route: 048
     Dates: start: 200412, end: 2005
  3. LANTUS [Concomitant]

REACTIONS (1)
  - Renal failure [Recovered/Resolved]
